FAERS Safety Report 7386834-2 (Version None)
Quarter: 2011Q1

REPORT INFORMATION
  Report Type: 
  Country: None (occurrence: None)
  Receive Date: 20110331
  Receipt Date: 20110330
  Transmission Date: 20110831
  Serious: Yes (Other)
  Sender: FDA-Public Use
  Company Number: GXKR2011DE01145

PATIENT
  Sex: Male

DRUGS (7)
  1. INEGY [Concomitant]
     Route: 048
  2. TACROLIMUS [Suspect]
     Dosage: 0.5 MG, BID
     Route: 048
     Dates: start: 20110114
  3. OMEPRAZOLE [Concomitant]
     Dosage: 20 MG, UNK
     Route: 048
  4. AMLODIPINE BESYLATE [Concomitant]
     Indication: HYPERTENSION
     Dosage: 5 MG, UNK
     Route: 048
  5. BISOPROLOL [Concomitant]
     Indication: HYPERTENSION
     Dosage: 10 MG, UNK
     Route: 048
  6. CELLCEPT [Concomitant]
     Indication: TRANSPLANT
     Dosage: 1000 MG, BID
     Route: 048
     Dates: start: 20020101
  7. RAMIPRIL [Concomitant]
     Indication: HYPERTENSION
     Dosage: 5 MG, UNK
     Route: 048

REACTIONS (3)
  - ANGIOEDEMA [None]
  - SWOLLEN TONGUE [None]
  - SWELLING FACE [None]
